FAERS Safety Report 25842240 (Version 1)
Quarter: 2025Q3

REPORT INFORMATION
  Report Type: Report from Study
  Country: EU (occurrence: EU)
  Receive Date: 20250924
  Receipt Date: 20250924
  Transmission Date: 20251021
  Serious: Yes (Death, Other)
  Sender: JOHNSON AND JOHNSON
  Company Number: EU-JNJFOC-20250933555

PATIENT

DRUGS (2)
  1. TOLODODEKIN ALFA [Suspect]
     Active Substance: TOLODODEKIN ALFA
     Indication: Plasma cell myeloma
     Route: 065
  2. BORTEZOMIB [Suspect]
     Active Substance: BORTEZOMIB
     Indication: Plasma cell myeloma
     Route: 065

REACTIONS (13)
  - Septic shock [Fatal]
  - Neutropenia [Unknown]
  - Pneumonia [Unknown]
  - Cholestatic liver injury [Unknown]
  - Blood disorder [Unknown]
  - Anaemia [Unknown]
  - Infection [Unknown]
  - Nervous system disorder [Unknown]
  - Gastrointestinal disorder [Unknown]
  - Liver disorder [Unknown]
  - Skin disorder [Unknown]
  - Angiopathy [Unknown]
  - Metabolic disorder [Unknown]
